FAERS Safety Report 21366505 (Version 1)
Quarter: 2022Q3

REPORT INFORMATION
  Report Type: Spontaneous
  Country: RO (occurrence: RO)
  Receive Date: 20220923
  Receipt Date: 20220923
  Transmission Date: 20221027
  Serious: Yes (Death, Other)
  Sender: FDA-Public Use
  Company Number: RO-NOVARTISPH-NVSC2022RO214968

PATIENT
  Age: 53 Year
  Sex: Male

DRUGS (1)
  1. KYMRIAH [Suspect]
     Active Substance: TISAGENLECLEUCEL
     Indication: Diffuse large B-cell lymphoma refractory
     Dosage: 0.6 - 6 X 10^8 VIABLE CAR-T CELLS
     Route: 042

REACTIONS (2)
  - Death [Fatal]
  - Cytokine release syndrome [Unknown]
